FAERS Safety Report 5131539-1 (Version None)
Quarter: 2006Q4

REPORT INFORMATION
  Report Type: 
  Country: None (occurrence: None)
  Receive Date: 20061020
  Receipt Date: 20061009
  Transmission Date: 20070319
  Serious: Yes (Life-Threatening, Hospitalization)
  Sender: FDA-Public Use
  Company Number: GB-ROCHE-466513

PATIENT
  Age: 72 Year
  Sex: Female
  Weight: 63 kg

DRUGS (11)
  1. BONIVA [Suspect]
     Indication: OSTEOPOROSIS
     Route: 048
     Dates: start: 20051121, end: 20051213
  2. ADCAL [Concomitant]
     Indication: OSTEOPOROSIS
     Route: 048
     Dates: start: 20060822
  3. DESLORATADINE [Concomitant]
     Dates: start: 20051031
  4. FERROUS SULFATE TAB [Concomitant]
     Indication: ANAEMIA
     Route: 048
     Dates: start: 20060727
  5. DULOXETINE [Concomitant]
     Route: 048
     Dates: start: 20060907
  6. IBANDRONIC ACID [Concomitant]
     Indication: OSTEOPOROSIS
     Dates: start: 20051209
  7. LEVOCETIRIZINE [Concomitant]
     Route: 048
     Dates: start: 20060822
  8. LEVOCETIRIZINE [Concomitant]
     Route: 048
  9. OMEPRAZOLE [Concomitant]
     Route: 048
     Dates: start: 20060822
  10. PANTOPRAZOLE SODIUM [Concomitant]
     Dates: start: 20060125
  11. PROTELOS [Concomitant]
     Route: 048
     Dates: start: 20060907

REACTIONS (3)
  - ANAEMIA [None]
  - HIATUS HERNIA [None]
  - OESOPHAGITIS [None]
